FAERS Safety Report 4590956-9 (Version None)
Quarter: 2005Q1

REPORT INFORMATION
  Report Type: 
  Country: None (occurrence: None)
  Receive Date: 20050222
  Receipt Date: 20050222
  Transmission Date: 20050727
  Serious: Yes (Hospitalization)
  Sender: FDA-Public Use
  Company Number: None

PATIENT
  Age: 46 Year
  Sex: Male
  Weight: 101.1521 kg

DRUGS (6)
  1. VYTORIN [Suspect]
     Indication: HYPERLIPIDAEMIA
     Dosage: 10/80 MG PO QPM
     Route: 048
  2. GEMFIBROZIL [Suspect]
     Indication: HYPERLIPIDAEMIA
     Dosage: 600MG PO BID
     Route: 048
  3. ELAVIL [Concomitant]
  4. AMARYL [Concomitant]
  5. CAPTOPRIL [Concomitant]
  6. HUMALOG [Concomitant]

REACTIONS (2)
  - HEPATITIS ACUTE [None]
  - RHABDOMYOLYSIS [None]
